FAERS Safety Report 13428282 (Version 2)
Quarter: 2017Q2

REPORT INFORMATION
  Report Type: Spontaneous
  Country: DE (occurrence: DE)
  Receive Date: 20170411
  Receipt Date: 20170628
  Transmission Date: 20170830
  Serious: Yes (Death, Hospitalization)
  Sender: FDA-Public Use
  Company Number: DE-JNJFOC-20170409510

PATIENT
  Age: 86 Year
  Sex: Male
  Weight: 91 kg

DRUGS (15)
  1. PRAVASTATIN. [Concomitant]
     Active Substance: PRAVASTATIN
     Route: 065
  2. XARELTO [Suspect]
     Active Substance: RIVAROXABAN
     Indication: CEREBROVASCULAR ACCIDENT PROPHYLAXIS
     Route: 048
     Dates: start: 201502, end: 20170331
  3. AMIODARONE HYDROCHLORIDE. [Concomitant]
     Active Substance: AMIODARONE HYDROCHLORIDE
     Indication: ATRIAL FIBRILLATION
     Route: 065
     Dates: start: 201502, end: 20170401
  4. ASPIRIN. [Concomitant]
     Active Substance: ASPIRIN
     Indication: CORONARY ARTERY DISEASE
     Route: 065
     Dates: start: 20170321, end: 20170402
  5. LAXOBERAL [Concomitant]
     Active Substance: SODIUM PICOSULFATE
     Route: 065
  6. PANTOPRAZOLE SODIUM. [Concomitant]
     Active Substance: PANTOPRAZOLE SODIUM
     Route: 065
  7. AMLODIPINE [Concomitant]
     Active Substance: AMLODIPINE BESYLATE
     Route: 065
  8. TORASEMID [Concomitant]
     Active Substance: TORSEMIDE
     Route: 065
  9. XARELTO [Suspect]
     Active Substance: RIVAROXABAN
     Indication: ATRIAL FIBRILLATION
     Route: 048
     Dates: start: 201502, end: 20170331
  10. COLCHICINE. [Concomitant]
     Active Substance: COLCHICINE
     Indication: DRESSLER^S SYNDROME
     Route: 065
     Dates: start: 20170328, end: 20170331
  11. BISOPROLOL [Concomitant]
     Active Substance: BISOPROLOL
     Route: 065
  12. CLOPIDOGREL [Concomitant]
     Active Substance: CLOPIDOGREL BISULFATE
     Indication: CORONARY ARTERY DISEASE
     Route: 065
     Dates: start: 20170321, end: 20170402
  13. VALSARTAN. [Concomitant]
     Active Substance: VALSARTAN
     Route: 065
  14. SPIRONOLACTONE. [Concomitant]
     Active Substance: SPIRONOLACTONE
     Route: 065
  15. SODIUM PERCHLORATE [Concomitant]
     Route: 065
     Dates: start: 20170331

REACTIONS (10)
  - Renal failure [Fatal]
  - Hepatic failure [Fatal]
  - Shock [Fatal]
  - Dressler^s syndrome [Unknown]
  - Cardiac failure [Fatal]
  - Pericardial effusion [Unknown]
  - Acute myocardial infarction [Unknown]
  - Coronary artery disease [Unknown]
  - Haematoma evacuation [Unknown]
  - Ejection fraction decreased [Unknown]

NARRATIVE: CASE EVENT DATE: 201606
